FAERS Safety Report 4576769-2 (Version None)
Quarter: 2005Q1

REPORT INFORMATION
  Report Type: 
  Country: None (occurrence: None)
  Receive Date: 20050207
  Receipt Date: 20050125
  Transmission Date: 20050727
  Serious: Yes (Other)
  Sender: FDA-Public Use
  Company Number: 2005001857

PATIENT
  Sex: Female
  Weight: 32.659 kg

DRUGS (4)
  1. ZITHROMAX [Suspect]
     Indication: PHARYNGITIS
     Dosage: 250 MG
     Dates: start: 20041228, end: 20041228
  2. ZITHROMAX [Suspect]
     Indication: PHARYNGITIS STREPTOCOCCAL
     Dosage: 250 MG
     Dates: start: 20041228, end: 20041228
  3. BENADRYL [Suspect]
     Indication: ILL-DEFINED DISORDER
     Dosage: 1 IN 1 D, INTRAVENOUS
     Route: 042
     Dates: start: 20041228, end: 20041228
  4. PREDNISONE [Concomitant]

REACTIONS (13)
  - ADENOIDECTOMY [None]
  - ANGIONEUROTIC OEDEMA [None]
  - COUGH [None]
  - EAR INFECTION [None]
  - FOREIGN BODY TRAUMA [None]
  - OEDEMA [None]
  - ORAL INTAKE REDUCED [None]
  - PHARYNGITIS [None]
  - SOMNOLENCE [None]
  - STREPTOCOCCAL INFECTION [None]
  - TONSILLAR DISORDER [None]
  - URTICARIA [None]
  - VIRAL INFECTION [None]
